FAERS Safety Report 4712973-8 (Version None)
Quarter: 2005Q3

REPORT INFORMATION
  Report Type: 
  Country: None (occurrence: None)
  Receive Date: 20050711
  Receipt Date: 20050701
  Transmission Date: 20060218
  Serious: Yes (Life-Threatening, Hospitalization)
  Sender: FDA-Public Use
  Company Number: ENTC2005-0119

PATIENT
  Age: 52 Year
  Sex: Male
  Weight: 85.7 kg

DRUGS (1)
  1. STALEVO 100 [Suspect]
     Indication: PARKINSON'S DISEASE
     Dosage: SEE IMAGE, ORAL/BEFORE HOSPITALISATION
     Route: 048

REACTIONS (5)
  - GASTROINTESTINAL DISORDER [None]
  - HYPERTHERMIA MALIGNANT [None]
  - POST PROCEDURAL COMPLICATION [None]
  - SURGERY [None]
  - TREMOR [None]
